FAERS Safety Report 6517760-6 (Version None)
Quarter: 2009Q4

REPORT INFORMATION
  Report Type: 
  Country: None (occurrence: None)
  Receive Date: 20091224
  Receipt Date: 20091215
  Transmission Date: 20100525
  Serious: Yes (Other)
  Sender: FDA-Public Use
  Company Number: US-NOVOPROD-302221

PATIENT
  Sex: Female

DRUGS (1)
  1. NORDITROPIN [Suspect]
     Indication: DRUG USE FOR UNKNOWN INDICATION
     Dosage: UNK
     Dates: start: 20091102

REACTIONS (3)
  - CONDITION AGGRAVATED [None]
  - OVERDOSE [None]
  - THYROID NEOPLASM [None]
